FAERS Safety Report 16590985 (Version 3)
Quarter: 2019Q4

REPORT INFORMATION
  Report Type: Spontaneous
  Country: US (occurrence: US)
  Receive Date: 20190718
  Receipt Date: 20191105
  Transmission Date: 20200122
  Serious: Yes (Hospitalization)
  Sender: FDA-Public Use
  Company Number: US-PFIZER INC-2019303216

PATIENT
  Age: 56 Year
  Sex: Female
  Weight: 33.11 kg

DRUGS (3)
  1. SKELAXIN [Suspect]
     Active Substance: METAXALONE
     Indication: PAIN
     Dosage: 800 MG, UNK
  2. SKELAXIN [Suspect]
     Active Substance: METAXALONE
     Indication: ABDOMINAL PAIN UPPER
     Dosage: UNK, AS NEEDED
  3. TRAMADOL. [Concomitant]
     Active Substance: TRAMADOL
     Dosage: 50 MG, UNK

REACTIONS (1)
  - Malaise [Unknown]
